FAERS Safety Report 13658534 (Version 1)
Quarter: 2017Q2

REPORT INFORMATION
  Report Type: Spontaneous
  Country: US (occurrence: US)
  Receive Date: 20170615
  Receipt Date: 20170615
  Transmission Date: 20170830
  Serious: Yes (Disabling)
  Sender: FDA-Public Use
  Company Number: None

PATIENT
  Age: 9 Year
  Sex: Female
  Weight: 22.5 kg

DRUGS (1)
  1. CIPRO [Suspect]
     Active Substance: CIPROFLOXACIN HYDROCHLORIDE
     Indication: URINARY TRACT INFECTION
     Dosage: 1 TEASPOON, TWICE A DAY, ORAL?
     Route: 048
     Dates: start: 20170516, end: 20170522

REACTIONS (1)
  - Tendonitis [None]

NARRATIVE: CASE EVENT DATE: 20170516
